FAERS Safety Report 7189707-3 (Version None)
Quarter: 2010Q4

REPORT INFORMATION
  Report Type: 
  Country: None (occurrence: None)
  Receive Date: 20101223
  Receipt Date: 20101214
  Transmission Date: 20110411
  Serious: No
  Sender: FDA-Public Use
  Company Number: US-BIOGENIDEC-2010BI044067

PATIENT
  Age: 55 Year
  Sex: Female

DRUGS (1)
  1. TYSABRI [Suspect]
     Indication: MULTIPLE SCLEROSIS
     Route: 042
     Dates: start: 20090715, end: 20101001

REACTIONS (4)
  - ABDOMINAL DISCOMFORT [None]
  - BRONCHITIS [None]
  - DRUG INEFFECTIVE [None]
  - MULTIPLE SCLEROSIS [None]
